FAERS Safety Report 14931422 (Version 2)
Quarter: 2018Q3

REPORT INFORMATION
  Report Type: Spontaneous
  Country: FR (occurrence: FR)
  Receive Date: 20180524
  Receipt Date: 20180910
  Transmission Date: 20181010
  Serious: Yes (Other)
  Sender: FDA-Public Use
  Company Number: FR-009507513-1805FRA005480

PATIENT
  Sex: Female
  Weight: 43 kg

DRUGS (2)
  1. STROMECTOL [Suspect]
     Active Substance: IVERMECTIN
     Indication: FILARIASIS
     Dosage: 4 TABLETS PER ADMINISTRATION
     Route: 048
     Dates: start: 2018
  2. DOXYCYCLINE. [Concomitant]
     Active Substance: DOXYCYCLINE
     Dosage: 200 MG DAILY FOR 2 MONTHS
     Dates: start: 2018

REACTIONS (8)
  - Suicidal ideation [Recovered/Resolved]
  - Helminthic infection [Recovering/Resolving]
  - Fatigue [Recovering/Resolving]
  - Somnolence [Recovering/Resolving]
  - Abdominal pain upper [Recovering/Resolving]
  - Depression [Recovering/Resolving]
  - Incorrect dose administered [Unknown]
  - Off label use [Unknown]

NARRATIVE: CASE EVENT DATE: 2018
